FAERS Safety Report 17157719 (Version 1)
Quarter: 2019Q4

REPORT INFORMATION
  Report Type: Spontaneous
  Country: US (occurrence: US)
  Receive Date: 20191213
  Receipt Date: 20191213
  Transmission Date: 20200122
  Serious: No
  Sender: FDA-Public Use
  Company Number: None

PATIENT
  Age: 59 Year
  Sex: Male
  Weight: 123.75 kg

DRUGS (7)
  1. METFORMIN [Concomitant]
     Active Substance: METFORMIN HYDROCHLORIDE
  2. ALLOPURINOL. [Concomitant]
     Active Substance: ALLOPURINOL
  3. BIKTARVY [Concomitant]
     Active Substance: BICTEGRAVIR SODIUM\EMTRICITABINE\TENOFOVIR ALAFENAMIDE FUMARATE
  4. ENALAPRIL [Concomitant]
     Active Substance: ENALAPRIL
  5. ATVORSTATIN [Concomitant]
  6. CYCLOBENZAPRINE 10 MG RX 1430357 CVS [Suspect]
     Active Substance: CYCLOBENZAPRINE
     Indication: ARTHRALGIA
     Dosage: ?          QUANTITY:21 TABLET(S);?
     Route: 048
     Dates: start: 20191212, end: 20191213
  7. CURCUMIN [Concomitant]
     Active Substance: CURCUMIN

REACTIONS (4)
  - Feeling abnormal [None]
  - Agitation [None]
  - Confusional state [None]
  - Depression [None]

NARRATIVE: CASE EVENT DATE: 20191212
